FAERS Safety Report 9761130 (Version 1)
Quarter: 2013Q4

REPORT INFORMATION
  Report Type: Spontaneous
  Country: JP (occurrence: JP)
  Receive Date: 20131216
  Receipt Date: 20131216
  Transmission Date: 20140711
  Serious: Yes (Other)
  Sender: FDA-Public Use
  Company Number: JP-PFIZER INC-2013357841

PATIENT
  Age: 25 Year
  Sex: Female

DRUGS (1)
  1. SOLANAX [Suspect]
     Dosage: 4 MG, SINGLE
     Dates: start: 20131212, end: 20131212

REACTIONS (3)
  - Suicide attempt [Unknown]
  - Intentional drug misuse [Unknown]
  - Somnolence [Unknown]
